FAERS Safety Report 6003792-3 (Version None)
Quarter: 2008Q4

REPORT INFORMATION
  Report Type: 
  Country: None (occurrence: None)
  Receive Date: 20081212
  Receipt Date: 20081128
  Transmission Date: 20090506
  Serious: Yes (Other)
  Sender: FDA-Public Use
  Company Number: JHP200800340

PATIENT
  Age: 65 Year
  Sex: Male

DRUGS (7)
  1. DANTRIUM [Suspect]
     Indication: DRUG USE FOR UNKNOWN INDICATION
     Dosage: 50 MG, QD, ORAL
     Route: 048
  2. PROTAGEN S (CHLORMADINONE ACETATE) [Concomitant]
  3. COLICOOL (CHLORPHENESIN CARBAMATE) [Concomitant]
  4. UBRETID (DISTIGMINE BROMIDE) [Concomitant]
  5. EVIPROSTAT /01150001/ (CHIMAPHILA UMBELLATA, EQUISETUM ARVENSE, MANGAN [Concomitant]
  6. MUCOSOLATE (AMBROXOL HYDROCHLORIDE) [Concomitant]
  7. GLYCLAMIN /00317302/ (SODIUM GUALENATE) [Concomitant]

REACTIONS (1)
  - INAPPROPRIATE ANTIDIURETIC HORMONE SECRETION [None]
